FAERS Safety Report 19007894 (Version 1)
Quarter: 2021Q1

REPORT INFORMATION
  Report Type: Spontaneous
  Country: US (occurrence: US)
  Receive Date: 20210315
  Receipt Date: 20210315
  Transmission Date: 20210420
  Serious: Yes (Hospitalization)
  Sender: FDA-Public Use
  Company Number: US-TILLOMEDPR-2021-EPL-000776

PATIENT
  Age: 72 Year
  Sex: Male

DRUGS (2)
  1. PREDNISONE. [Suspect]
     Active Substance: PREDNISONE
     Indication: POLYCHONDRITIS
     Dosage: UNK
  2. LEFLUNOMIDE. [Suspect]
     Active Substance: LEFLUNOMIDE
     Indication: POLYCHONDRITIS
     Dosage: UNK

REACTIONS (5)
  - Acute febrile neutrophilic dermatosis [Unknown]
  - Off label use [Unknown]
  - Scleritis [Unknown]
  - Pancytopenia [Unknown]
  - Retinal artery occlusion [Unknown]
